FAERS Safety Report 8981944 (Version 1)
Quarter: 2012Q4

REPORT INFORMATION
  Report Type: 
  Country: US (occurrence: US)
  Receive Date: 20121212
  Receipt Date: 20121212
  Transmission Date: 20130627
  Serious: Yes (Other)
  Sender: FDA-Public Use
  Company Number: US-ASTELLAS-1104965

PATIENT
  Sex: Male

DRUGS (4)
  1. TARCEVA [Suspect]
     Indication: BRAIN NEOPLASM MALIGNANT
     Route: 065
  2. TARCEVA [Suspect]
     Indication: BRAIN NEOPLASM MALIGNANT
  3. AVASTIN [Suspect]
     Indication: BRAIN NEOPLASM MALIGNANT
     Route: 065
  4. AVASTIN [Suspect]
     Indication: BRAIN NEOPLASM MALIGNANT

REACTIONS (5)
  - Disease recurrence [Unknown]
  - Aphasia [Unknown]
  - Urinary incontinence [Unknown]
  - Hemiparesis [Unknown]
  - Convulsion [Unknown]
